FAERS Safety Report 6801064-8 (Version None)
Quarter: 2010Q2

REPORT INFORMATION
  Report Type: 
  Country: None (occurrence: None)
  Receive Date: 20100624
  Receipt Date: 20100610
  Transmission Date: 20101027
  Serious: Yes (Hospitalization, Other)
  Sender: FDA-Public Use
  Company Number: AUR-APL-2010-01516

PATIENT
  Age: 60 Year
  Sex: Male

DRUGS (6)
  1. SIMVASTATIN [Suspect]
  2. ATORVASTATIN [Suspect]
  3. ASPIRIN [Concomitant]
  4. GLICLAZIDE [Concomitant]
  5. RAMIPRIL [Concomitant]
  6. DIPYRIDAMOLE [Concomitant]

REACTIONS (7)
  - BRAIN STEM STROKE [None]
  - DIPLOPIA [None]
  - DYSARTHRIA [None]
  - DYSPHAGIA [None]
  - EYELID PTOSIS [None]
  - FATIGUE [None]
  - MYASTHENIA GRAVIS [None]
